FAERS Safety Report 10073254 (Version 1)
Quarter: 2014Q2

REPORT INFORMATION
  Report Type: Spontaneous
  Country: CA (occurrence: CA)
  Receive Date: 20140411
  Receipt Date: 20140411
  Transmission Date: 20141212
  Serious: Yes (Other)
  Sender: FDA-Public Use
  Company Number: CA-GLAXOSMITHKLINE-A1068962A

PATIENT
  Age: 68 Year
  Sex: Male
  Weight: 90.9 kg

DRUGS (15)
  1. AVODART [Suspect]
     Indication: PRODUCT USED FOR UNKNOWN INDICATION
     Dosage: .5MG PER DAY
     Route: 048
  2. METOPROLOL [Concomitant]
     Route: 048
  3. TERAZOSIN [Concomitant]
     Route: 048
  4. ASA [Concomitant]
     Route: 048
  5. CALCIUM + VITAMIN D [Concomitant]
     Route: 048
  6. DITROPAN [Concomitant]
     Route: 048
  7. EZETROL [Concomitant]
     Route: 048
  8. FENOFIBRATE [Concomitant]
     Route: 048
  9. KETODERM [Concomitant]
     Route: 061
  10. LIPITOR [Concomitant]
     Route: 048
  11. ALENDRONATE [Concomitant]
     Route: 048
  12. TRIAMTERENE+HYDROCHLORTHIZIDE [Concomitant]
     Route: 048
  13. VITAMIN B12 [Concomitant]
     Route: 048
  14. VITAMIN D [Concomitant]
     Route: 048
  15. ZOPICLONE [Concomitant]
     Route: 048

REACTIONS (5)
  - Blood glucose increased [Not Recovered/Not Resolved]
  - Malaise [Not Recovered/Not Resolved]
  - Pollakiuria [Not Recovered/Not Resolved]
  - Polydipsia [Not Recovered/Not Resolved]
  - Visual impairment [Not Recovered/Not Resolved]
